FAERS Safety Report 22913975 (Version 3)
Quarter: 2024Q1

REPORT INFORMATION
  Report Type: Report from Study
  Country: US (occurrence: US)
  Receive Date: 20230906
  Receipt Date: 20240202
  Transmission Date: 20240410
  Serious: Yes (Death)
  Sender: FDA-Public Use
  Company Number: US-Stemline Therapeutics, Inc.-2023ST002330

PATIENT
  Age: 78 Year
  Sex: Female

DRUGS (1)
  1. ORSERDU [Suspect]
     Active Substance: ELACESTRANT
     Indication: Product used for unknown indication
     Dosage: 344MG, 4 TABLETS ONCE A DAY BY MOUTH
     Route: 048

REACTIONS (3)
  - Death [Fatal]
  - Adverse drug reaction [Not Recovered/Not Resolved]
  - Disease progression [Not Recovered/Not Resolved]
